FAERS Safety Report 10279819 (Version 1)
Quarter: 2014Q3

REPORT INFORMATION
  Report Type: Spontaneous
  Country: DE (occurrence: DE)
  Receive Date: 20140707
  Receipt Date: 20140707
  Transmission Date: 20150326
  Serious: Yes (Other)
  Sender: FDA-Public Use
  Company Number: DE-GALDERMA-DE14002433

PATIENT
  Age: 45 Year
  Sex: Female

DRUGS (2)
  1. ARISTELLE [Interacting]
     Active Substance: DIENOGEST\ETHINYL ESTRADIOL
     Indication: CONTRACEPTION
     Route: 048
  2. ORAYCEA [Suspect]
     Active Substance: DOXYCYCLINE
     Indication: ROSACEA
     Route: 048

REACTIONS (6)
  - Abdominal discomfort [None]
  - Pregnancy on oral contraceptive [Unknown]
  - Inhibitory drug interaction [Unknown]
  - Exposure during pregnancy [Unknown]
  - Vomiting [None]
  - Abortion spontaneous [Unknown]
